FAERS Safety Report 9245336 (Version 1)
Quarter: 2013Q2

REPORT INFORMATION
  Report Type: Spontaneous
  Country: CO (occurrence: CO)
  Receive Date: 20130422
  Receipt Date: 20130422
  Transmission Date: 20140414
  Serious: Yes (Death)
  Sender: FDA-Public Use
  Company Number: CO-JNJFOC-20130412218

PATIENT
  Age: 84 Year
  Sex: Female

DRUGS (1)
  1. REMINYL ER [Suspect]
     Indication: PRODUCT USED FOR UNKNOWN INDICATION
     Route: 048
     Dates: start: 20110729, end: 20130101

REACTIONS (1)
  - Respiratory arrest [Fatal]
